FAERS Safety Report 20685882 (Version 1)
Quarter: 2022Q2

REPORT INFORMATION
  Report Type: Spontaneous
  Country: FR (occurrence: FR)
  Receive Date: 20220407
  Receipt Date: 20220407
  Transmission Date: 20220720
  Serious: Yes (Hospitalization, Other)
  Sender: FDA-Public Use
  Company Number: None

PATIENT
  Age: 70 Year
  Sex: Male

DRUGS (2)
  1. KEYTRUDA [Suspect]
     Active Substance: PEMBROLIZUMAB
     Indication: Lung cancer metastatic
     Dosage: 200 MILLIGRAM, 1 CYCLICAL, 13 CYCLES
     Route: 042
     Dates: start: 20201127, end: 20211230
  2. ALIMTA [Concomitant]
     Active Substance: PEMETREXED DISODIUM
     Indication: Bronchial carcinoma
     Dosage: 500 MILLIGRAM/SQ. METER, 1 CYCLICAL, 10 CYCLES
     Route: 042
     Dates: start: 20201127, end: 20210902

REACTIONS (2)
  - Diabetes insipidus [Not Recovered/Not Resolved]
  - Autoimmune nephritis [Not Recovered/Not Resolved]

NARRATIVE: CASE EVENT DATE: 20210924
